FAERS Safety Report 6257467-6 (Version None)
Quarter: 2009Q2

REPORT INFORMATION
  Report Type: 
  Country: None (occurrence: None)
  Receive Date: 20090630
  Receipt Date: 20090630
  Transmission Date: 20091009
  Serious: Yes (Other)
  Sender: FDA-Public Use
  Company Number: None

PATIENT
  Age: 5 Year
  Sex: Male
  Weight: 19.5047 kg

DRUGS (4)
  1. SINGULAIR [Suspect]
     Indication: RESPIRATORY DISORDER
     Dosage: 4MG 1 BUCCAL
     Route: 002
     Dates: start: 20090127, end: 20090201
  2. SINGULAIR [Suspect]
     Indication: RHINITIS ALLERGIC
     Dosage: 4MG 1 BUCCAL
     Route: 002
     Dates: start: 20090127, end: 20090201
  3. SINGULAIR [Suspect]
     Indication: RESPIRATORY DISORDER
     Dosage: 4MG 1 BUCCAL
     Route: 002
     Dates: start: 20090501, end: 20090601
  4. SINGULAIR [Suspect]
     Indication: RHINITIS ALLERGIC
     Dosage: 4MG 1 BUCCAL
     Route: 002
     Dates: start: 20090501, end: 20090601

REACTIONS (5)
  - AGGRESSION [None]
  - ARTHRALGIA [None]
  - HALLUCINATION [None]
  - MOOD ALTERED [None]
  - NIGHTMARE [None]
